FAERS Safety Report 5238913-3 (Version None)
Quarter: 2007Q1

REPORT INFORMATION
  Report Type: 
  Country: None (occurrence: None)
  Receive Date: 20070215
  Receipt Date: 20070207
  Transmission Date: 20070707
  Serious: Yes (Other)
  Sender: FDA-Public Use
  Company Number: GB-PFIZER INC-2007011078

PATIENT
  Age: 65 Year
  Sex: Female

DRUGS (2)
  1. DETRUSITOL XL [Suspect]
     Indication: URINARY INCONTINENCE
  2. ALL OTHER THERAPEUTIC PRODUCTS [Concomitant]

REACTIONS (2)
  - DRY MOUTH [None]
  - LIVER DISORDER [None]
